FAERS Safety Report 20781873 (Version 3)
Quarter: 2022Q2

REPORT INFORMATION
  Report Type: Spontaneous
  Country: US (occurrence: US)
  Receive Date: 20220504
  Receipt Date: 20220624
  Transmission Date: 20220720
  Serious: No
  Sender: FDA-Public Use
  Company Number: US-LUPIN PHARMACEUTICALS INC.-2022-06356

PATIENT
  Age: 22 Year
  Sex: Female

DRUGS (9)
  1. BETAMETHASONE [Suspect]
     Active Substance: BETAMETHASONE
     Indication: Interstitial lung disease
     Dosage: UNK
     Route: 065
  2. HYDROCORTISONE [Suspect]
     Active Substance: HYDROCORTISONE
     Indication: Product used for unknown indication
     Dosage: 100 MG
     Route: 042
  3. MORPHINE [Suspect]
     Active Substance: MORPHINE
     Indication: Spinal anaesthesia
     Dosage: 150 MICROGRAM
     Route: 065
  4. RITUXIMAB [Suspect]
     Active Substance: RITUXIMAB
     Indication: Interstitial lung disease
     Dosage: UNK (TRIANNUAL RITUXIMAB INFUSION)
     Route: 065
  5. RITUXIMAB [Suspect]
     Active Substance: RITUXIMAB
     Dosage: 2000 MILLIGRAM (EVERY 5 MONTHS)
     Route: 042
  6. PREDNISONE [Suspect]
     Active Substance: PREDNISONE
     Indication: Interstitial lung disease
     Dosage: 10 MILLIGRAM, QD
     Route: 065
  7. BUPIVACAINE [Suspect]
     Active Substance: BUPIVACAINE
     Indication: Spinal anaesthesia
     Dosage: 1.6 MILLILITER
     Route: 065
  8. DEXTROSE [Suspect]
     Active Substance: DEXTROSE
     Indication: Vehicle solution use
     Dosage: UNK
     Route: 065
  9. FENTANYL [Suspect]
     Active Substance: FENTANYL
     Indication: Spinal anaesthesia
     Dosage: 15 MICROGRAM
     Route: 065

REACTIONS (2)
  - Maternal exposure during pregnancy [Unknown]
  - Premature delivery [Unknown]
